FAERS Safety Report 10523028 (Version 1)
Quarter: 2014Q4

REPORT INFORMATION
  Report Type: Spontaneous
  Country: US (occurrence: US)
  Receive Date: 20141016
  Receipt Date: 20141016
  Transmission Date: 20150528
  Serious: No
  Sender: FDA-Public Use
  Company Number: US-PFIZER INC-2014281822

PATIENT
  Age: 76 Year
  Sex: Female

DRUGS (1)
  1. LIPITOR [Suspect]
     Active Substance: ATORVASTATIN CALCIUM
     Indication: BLOOD CHOLESTEROL
     Dosage: 40 MG (1/2 OF 80 MG), 1X/DAY
     Route: 048

REACTIONS (5)
  - Cough [Unknown]
  - Upper-airway cough syndrome [Unknown]
  - Blepharospasm [Unknown]
  - Myalgia [Not Recovered/Not Resolved]
  - Eyelid oedema [Unknown]

NARRATIVE: CASE EVENT DATE: 2014
